FAERS Safety Report 8085205-3 (Version None)
Quarter: 2012Q1

REPORT INFORMATION
  Report Type: 
  Country: None (occurrence: None)
  Receive Date: 20120128
  Receipt Date: 20110329
  Transmission Date: 20120608
  Serious: No
  Sender: FDA-Public Use
  Company Number: US-ABBOTT-11P-163-0714915-00

PATIENT
  Sex: Male
  Weight: 66.284 kg

DRUGS (3)
  1. HUMIRA [Suspect]
     Indication: ANKYLOSING SPONDYLITIS
     Dates: start: 20100801
  2. METHOXTRATE [Concomitant]
     Indication: ANKYLOSING SPONDYLITIS
     Route: 058
  3. MOBIC [Concomitant]
     Indication: ANKYLOSING SPONDYLITIS

REACTIONS (2)
  - FATIGUE [None]
  - ABDOMINAL PAIN [None]
